FAERS Safety Report 12801153 (Version 1)
Quarter: 2016Q4

REPORT INFORMATION
  Report Type: Spontaneous
  Country: None (occurrence: GB)
  Receive Date: 20161003
  Receipt Date: 20161003
  Transmission Date: 20170207
  Serious: Yes (Hospitalization)
  Sender: FDA-Public Use
  Company Number: GB-HETERO LABS LTD-1057903

PATIENT
  Age: 65 Year
  Sex: Male

DRUGS (5)
  1. VIRAMUNE [Suspect]
     Active Substance: NEVIRAPINE
  2. ACICLOVIR [Suspect]
     Active Substance: ACYCLOVIR
  3. ALPROSTADIL. [Suspect]
     Active Substance: ALPROSTADIL
  4. MARAVIROC [Suspect]
     Active Substance: MARAVIROC
  5. LAMIVUDINE. [Suspect]
     Active Substance: LAMIVUDINE
     Indication: PRODUCT USED FOR UNKNOWN INDICATION

REACTIONS (2)
  - Dizziness [Unknown]
  - Meniere^s disease [Unknown]
